FAERS Safety Report 4993968-6 (Version None)
Quarter: 2006Q2

REPORT INFORMATION
  Report Type: 
  Country: None (occurrence: None)
  Receive Date: 20060505
  Receipt Date: 20060426
  Transmission Date: 20061013
  Serious: Yes (Life-Threatening, Hospitalization)
  Sender: FDA-Public Use
  Company Number: FR-GLAXOSMITHKLINE-B0421676A

PATIENT
  Age: 40 Year
  Sex: Male

DRUGS (6)
  1. COMBIVIR [Suspect]
     Indication: HIV INFECTION
     Dosage: 2TAB PER DAY
     Route: 048
     Dates: start: 20030127, end: 20060314
  2. DEPAKOTE [Suspect]
     Indication: MANIA
     Dosage: 1G TWICE PER DAY
     Route: 065
     Dates: start: 20051227, end: 20060314
  3. VIDEX [Concomitant]
     Indication: HIV INFECTION
     Dosage: 250MG PER DAY
     Route: 048
     Dates: start: 20030127, end: 20060314
  4. RISPERDAL [Concomitant]
     Indication: CEREBELLAR ATROPHY
     Dosage: 4MG PER DAY
     Route: 065
     Dates: start: 20030101
  5. NOCTRAN [Concomitant]
     Dosage: 1TAB PER DAY
     Route: 048
     Dates: start: 20030101
  6. OROCAL D3 [Concomitant]
     Route: 065
     Dates: start: 20030101

REACTIONS (8)
  - APLASIA PURE RED CELL [None]
  - APLASTIC ANAEMIA [None]
  - ASTHENIA [None]
  - DRUG INTERACTION [None]
  - PALLOR [None]
  - PANCYTOPENIA [None]
  - PLATELET COUNT DECREASED [None]
  - WHITE BLOOD CELL COUNT DECREASED [None]
